FAERS Safety Report 6305591-1 (Version None)
Quarter: 2009Q3

REPORT INFORMATION
  Report Type: 
  Country: None (occurrence: None)
  Receive Date: 20090806
  Receipt Date: 20090716
  Transmission Date: 20100115
  Serious: Yes (Hospitalization)
  Sender: FDA-Public Use
  Company Number: 002311

PATIENT
  Age: 60 Year
  Sex: Male

DRUGS (1)
  1. PEGATANIB SODIUM (PEGAPTANIB SODIUM) UNKNOWN [Suspect]
     Indication: MACULAR DEGENERATION
     Dosage: INTRAOCULAR
     Route: 031

REACTIONS (2)
  - RETINAL HAEMORRHAGE [None]
  - VISUAL ACUITY REDUCED [None]
